FAERS Safety Report 16047043 (Version 1)
Quarter: 2019Q1

REPORT INFORMATION
  Report Type: Spontaneous
  Country: DE (occurrence: DE)
  Receive Date: 20190307
  Receipt Date: 20190307
  Transmission Date: 20190418
  Serious: Yes (Hospitalization, Disabling)
  Sender: FDA-Public Use
  Company Number: DE-LEO PHARMA-317231

PATIENT
  Sex: Female

DRUGS (2)
  1. PROTOPIC [Suspect]
     Active Substance: TACROLIMUS
     Indication: EYE DISORDER
  2. PROTOPIC [Suspect]
     Active Substance: TACROLIMUS
     Indication: CORNEAL DISORDER

REACTIONS (5)
  - Medication error [Unknown]
  - Eye pain [Unknown]
  - Product use in unapproved indication [Unknown]
  - Eye operation [Unknown]
  - Visual impairment [Not Recovered/Not Resolved]
